FAERS Safety Report 17367947 (Version 1)
Quarter: 2020Q1

REPORT INFORMATION
  Report Type: Spontaneous
  Country: US (occurrence: US)
  Receive Date: 20200204
  Receipt Date: 20200204
  Transmission Date: 20200409
  Serious: Yes (Other)
  Sender: FDA-Public Use
  Company Number: US-PFIZER INC-2020046314

PATIENT
  Age: 63 Year
  Sex: Female
  Weight: 73.48 kg

DRUGS (1)
  1. REVATIO [Suspect]
     Active Substance: SILDENAFIL CITRATE
     Indication: PULMONARY ARTERIAL HYPERTENSION
     Dosage: 20 MG, 3X/DAY (ONE PILL THREE TIMES A DAY, BY MOUTH)
     Route: 048

REACTIONS (3)
  - Expired product administered [Unknown]
  - Rheumatoid arthritis [Unknown]
  - Stress [Unknown]
